FAERS Safety Report 7447294-6 (Version None)
Quarter: 2011Q2

REPORT INFORMATION
  Report Type: 
  Country: None (occurrence: None)
  Receive Date: 20110429
  Receipt Date: 20101217
  Transmission Date: 20111010
  Serious: No
  Sender: FDA-Public Use
  Company Number: US-ASTRAZENECA-2010SE60089

PATIENT
  Age: 53 Year
  Sex: Female

DRUGS (1)
  1. NEXIUM [Suspect]
     Dosage: TOTAL DAILY DOSAGE 40MG, TWO TIMES A DAY
     Route: 048

REACTIONS (2)
  - REGURGITATION [None]
  - DRUG DOSE OMISSION [None]
